FAERS Safety Report 7376530-X (Version None)
Quarter: 2011Q1

REPORT INFORMATION
  Report Type: 
  Country: None (occurrence: None)
  Receive Date: 20110325
  Receipt Date: 20110323
  Transmission Date: 20110831
  Serious: Yes (Other)
  Sender: FDA-Public Use
  Company Number: US-ROXANE LABORATORIES, INC.-2011-RO-00397RO

PATIENT
  Age: 56 Year
  Sex: Male

DRUGS (3)
  1. MERCAPTOPURINE [Suspect]
     Indication: CROHN'S DISEASE
     Dosage: 75 MG
     Dates: start: 20020101, end: 20081201
  2. PREDNISONE [Suspect]
     Indication: CROHN'S DISEASE
     Dates: end: 20020101
  3. WARFARIN [Suspect]
     Indication: DEEP VEIN THROMBOSIS

REACTIONS (2)
  - NODULAR REGENERATIVE HYPERPLASIA [None]
  - STEROID THERAPY [None]
